FAERS Safety Report 25217737 (Version 1)
Quarter: 2025Q2

REPORT INFORMATION
  Report Type: Report from Study
  Country: CA (occurrence: CA)
  Receive Date: 20250420
  Receipt Date: 20250420
  Transmission Date: 20250716
  Serious: Yes (Hospitalization)
  Sender: ABBVIE
  Company Number: CA-ABBVIE-6225354

PATIENT
  Age: 76 Year
  Sex: Male

DRUGS (2)
  1. LUPRON [Suspect]
     Active Substance: LEUPROLIDE ACETATE
     Indication: Prostate cancer
     Dosage: FORM STRENGTH: 22.5 MILLIGRAM,?MISSED DOSE
     Route: 058
     Dates: start: 20240109
  2. LUPRON [Suspect]
     Active Substance: LEUPROLIDE ACETATE
     Dosage: FORM STRENGTH: 22.5 MILLIGRAM
     Route: 058

REACTIONS (2)
  - Diarrhoea [Unknown]
  - Hip fracture [Unknown]

NARRATIVE: CASE EVENT DATE: 20241201
